FAERS Safety Report 7828186-7 (Version None)
Quarter: 2011Q4

REPORT INFORMATION
  Report Type: 
  Country: None (occurrence: None)
  Receive Date: 20111020
  Receipt Date: 20111006
  Transmission Date: 20120403
  Serious: Yes (Hospitalization, Other)
  Sender: FDA-Public Use
  Company Number: US-ELI_LILLY_AND_COMPANY-US201008001481

PATIENT
  Sex: Male

DRUGS (31)
  1. FORTEO [Suspect]
     Dosage: 20 UG, DAILY (1/D)
     Route: 058
  2. AGGRENOX [Concomitant]
  3. SINGULAIR [Concomitant]
     Dosage: UNK, PRN
  4. VITAMIN D [Concomitant]
  5. VICODIN [Concomitant]
     Indication: PAIN
  6. CENTRUM                            /00554501/ [Concomitant]
  7. NAPROSYN [Concomitant]
  8. CALCIUM CARBONATE [Concomitant]
  9. FORTEO [Suspect]
     Dosage: 20 UG, QD
     Route: 058
  10. HYTRIN [Concomitant]
  11. DILTIAZEM HCL [Concomitant]
     Indication: HYPERTENSION
  12. ALLEGRA [Concomitant]
     Dosage: UNK, PRN
  13. FORTEO [Suspect]
     Dosage: 20 UG, QD
     Route: 058
  14. GLUCOSAMINE CHONDROITIN [Concomitant]
  15. METAMUCIL-2 [Concomitant]
  16. FORTEO [Suspect]
     Dosage: 20 UG, QD
     Route: 058
  17. MULTIVITAMIN [Concomitant]
  18. PROTONIX [Concomitant]
     Indication: OESOPHAGITIS
  19. VIT C [Concomitant]
  20. B50 [Concomitant]
  21. FORTEO [Suspect]
     Dosage: 20 UG, DAILY (1/D)
     Route: 058
  22. NASONEX [Concomitant]
  23. ASPIRIN [Concomitant]
  24. CALCIUM 500+D3 [Concomitant]
  25. PLAVIX [Concomitant]
  26. FORTEO [Suspect]
     Indication: OSTEOPOROSIS
     Dosage: 20 UG, DAILY (1/D)
     Route: 058
     Dates: start: 20100610, end: 20100726
  27. FORTEO [Suspect]
     Dosage: 20 UG, QD
     Route: 058
  28. FORTEO [Suspect]
     Dosage: 20 UG, QD
     Route: 058
  29. VENTOLIN                                /SCH/ [Concomitant]
     Indication: DYSPNOEA
  30. VITAMIN B-12 [Concomitant]
  31. PRESERVISION LUTEIN EYE VITA.+MIN.SUP.SOFTG. [Concomitant]

REACTIONS (13)
  - NAIL DISORDER [None]
  - FEELING ABNORMAL [None]
  - HAEMOGLOBIN ABNORMAL [None]
  - INJECTION SITE PRURITUS [None]
  - DYSPNOEA [None]
  - ARTERIAL OCCLUSIVE DISEASE [None]
  - PIGMENTATION DISORDER [None]
  - FATIGUE [None]
  - DEPRESSION [None]
  - PAIN [None]
  - INCORRECT STORAGE OF DRUG [None]
  - MUSCULAR WEAKNESS [None]
  - COUGH [None]
